FAERS Safety Report 8832632 (Version 1)
Quarter: 2012Q4

REPORT INFORMATION
  Report Type: 
  Country: US (occurrence: US)
  Receive Date: 20121010
  Receipt Date: 20121010
  Transmission Date: 20130627
  Serious: No
  Sender: FDA-Public Use
  Company Number: US-PFIZER INC-2012249315

PATIENT
  Age: 81 Year
  Sex: Female
  Weight: 48.98 kg

DRUGS (2)
  1. ADVIL [Suspect]
     Indication: PAIN
     Dosage: UNK, once a day
     Route: 048
     Dates: start: 201209, end: 201209
  2. ATENOLOL [Concomitant]
     Indication: CARDIAC DISORDER
     Dosage: 25 mg, once a day

REACTIONS (1)
  - Drug effect incomplete [Unknown]
